FAERS Safety Report 26170869 (Version 1)
Quarter: 2025Q4

REPORT INFORMATION
  Report Type: Spontaneous
  Country: CN (occurrence: CN)
  Receive Date: 20251217
  Receipt Date: 20251217
  Transmission Date: 20260118
  Serious: Yes (Other)
  Sender: PFIZER
  Company Number: CN-PFIZER INC-PV202500146283

PATIENT
  Age: 68 Year
  Sex: Female
  Weight: 61 kg

DRUGS (3)
  1. EPIRUBICIN HYDROCHLORIDE [Suspect]
     Active Substance: EPIRUBICIN HYDROCHLORIDE
     Indication: Breast cancer
     Dosage: 80 MG, ON DAY 1 (D1), EVERY 3 WEEKS (Q3W)
     Route: 041
     Dates: start: 20251118, end: 20251118
  2. EPIRUBICIN HYDROCHLORIDE [Suspect]
     Active Substance: EPIRUBICIN HYDROCHLORIDE
     Dosage: 70 MG, ON DAY 2 (D2), EVERY 3 WEEKS (Q3W)
     Route: 041
     Dates: start: 20251119, end: 20251119
  3. CYCLOPHOSPHAMIDE [Suspect]
     Active Substance: CYCLOPHOSPHAMIDE
     Indication: Breast cancer
     Dosage: 1 G, ON DAY 1 (D1), EVERY 3 WEEKS (Q3W)
     Route: 041
     Dates: start: 20251118, end: 20251118

REACTIONS (4)
  - Vertigo [Recovering/Resolving]
  - Chest discomfort [Recovering/Resolving]
  - Dyspnoea [Recovering/Resolving]
  - Blood glucose increased [Unknown]

NARRATIVE: CASE EVENT DATE: 20251120
